FAERS Safety Report 11966561 (Version 1)
Quarter: 2016Q1

REPORT INFORMATION
  Report Type: Other
  Country: FR (occurrence: FR)
  Receive Date: 20160127
  Receipt Date: 20160127
  Transmission Date: 20160526
  Serious: Yes (Other)
  Sender: FDA-Public Use
  Company Number: FR-AKRON, INC.-1046964

PATIENT

DRUGS (1)
  1. TROPICAMIDE 0.5% SOLUTION [Suspect]
     Active Substance: TROPICAMIDE
     Route: 047

REACTIONS (2)
  - Necrotising enterocolitis neonatal [Unknown]
  - Maternal drugs affecting foetus [None]
